FAERS Safety Report 5272991-0 (Version None)
Quarter: 2007Q1

REPORT INFORMATION
  Report Type: 
  Country: None (occurrence: None)
  Receive Date: 20070322
  Receipt Date: 20070315
  Transmission Date: 20070707
  Serious: Yes (Hospitalization, Other)
  Sender: FDA-Public Use
  Company Number: US-PFIZER INC-2005163464

PATIENT
  Sex: Female
  Weight: 53.5 kg

DRUGS (6)
  1. BEXTRA [Suspect]
     Indication: MUSCULOSKELETAL PAIN
  2. BEXTRA [Suspect]
     Indication: UPPER LIMB FRACTURE
  3. VIOXX [Concomitant]
  4. CELEBREX [Concomitant]
  5. ASPIRIN [Concomitant]
  6. MOBIC [Concomitant]

REACTIONS (7)
  - AMNESIA [None]
  - CARDIAC DISORDER [None]
  - CEREBROVASCULAR ACCIDENT [None]
  - HYPERTENSION [None]
  - PAIN [None]
  - RASH [None]
  - TRANSIENT ISCHAEMIC ATTACK [None]
